FAERS Safety Report 23798325 (Version 1)
Quarter: 2024Q2

REPORT INFORMATION
  Report Type: Other
  Country: US (occurrence: US)
  Receive Date: 20240430
  Receipt Date: 20240430
  Transmission Date: 20240717
  Serious: Yes (Other)
  Sender: FDA-Public Use
  Company Number: US-Omnivium Pharmaceuticals LLC-2156277

PATIENT
  Sex: Male

DRUGS (1)
  1. NUMBRINO [Suspect]
     Active Substance: COCAINE HYDROCHLORIDE
     Indication: Product used for unknown indication
     Route: 065

REACTIONS (2)
  - Substance use disorder [Unknown]
  - Myocarditis [Unknown]
